FAERS Safety Report 5704285-0 (Version None)
Quarter: 2008Q2

REPORT INFORMATION
  Report Type: 
  Country: None (occurrence: None)
  Receive Date: 20080414
  Receipt Date: 20080409
  Transmission Date: 20081010
  Serious: Yes (Death)
  Sender: FDA-Public Use
  Company Number: US-ASTRAZENECA-2008AC00894

PATIENT
  Sex: Male

DRUGS (11)
  1. LIDOCAINE [Suspect]
  2. FENTANYL [Suspect]
  3. XYLAZINE [Suspect]
  4. MORPHINE [Suspect]
  5. HEROIN [Suspect]
  6. CODEINE SUL TAB [Suspect]
  7. COCAINE [Suspect]
  8. DILTIAZEM [Suspect]
  9. HYDROXYZINE [Suspect]
  10. IBUPROFEN [Suspect]
  11. PROCAINE HCL [Suspect]

REACTIONS (4)
  - ADVERSE EVENT [None]
  - DRUG ABUSE [None]
  - LOSS OF CONSCIOUSNESS [None]
  - MULTIPLE DRUG OVERDOSE [None]
